FAERS Safety Report 5370847-6 (Version None)
Quarter: 2007Q2

REPORT INFORMATION
  Report Type: 
  Country: None (occurrence: None)
  Receive Date: 20070614
  Receipt Date: 20070423
  Transmission Date: 20071010
  Serious: No
  Sender: FDA-Public Use
  Company Number: BDI-009445

PATIENT
  Age: 75 Year
  Sex: Female

DRUGS (3)
  1. MULTIHANCE [Suspect]
     Indication: ERYTHEMA
     Dosage: 20 ML ONCE IV
     Route: 042
     Dates: start: 20070422, end: 20070422
  2. MULTIHANCE [Suspect]
     Indication: NUCLEAR MAGNETIC RESONANCE IMAGING
     Dosage: 20 ML ONCE IV
     Route: 042
     Dates: start: 20070422, end: 20070422
  3. MULTIHANCE [Suspect]
     Indication: PAIN IN EXTREMITY
     Dosage: 20 ML ONCE IV
     Route: 042
     Dates: start: 20070422, end: 20070422

REACTIONS (3)
  - ERYTHEMA [None]
  - PAIN IN EXTREMITY [None]
  - PRURITUS [None]
